FAERS Safety Report 25954557 (Version 1)
Quarter: 2025Q4

REPORT INFORMATION
  Report Type: Spontaneous
  Country: EU (occurrence: EU)
  Receive Date: 20251024
  Receipt Date: 20251024
  Transmission Date: 20260118
  Serious: Yes (Other)
  Sender: GLAXOSMITHKLINE
  Company Number: EU-GSK-FR2025EME135903

PATIENT

DRUGS (1)
  1. MOMELOTINIB DIHYDROCHLORIDE [Suspect]
     Active Substance: MOMELOTINIB DIHYDROCHLORIDE
     Indication: Product used for unknown indication
     Dosage: UNK

REACTIONS (1)
  - Thrombocytopenia [Unknown]
